FAERS Safety Report 8524100-X (Version None)
Quarter: 2012Q3

REPORT INFORMATION
  Report Type: 
  Country: None (occurrence: None)
  Receive Date: 20120720
  Receipt Date: 20120710
  Transmission Date: 20120928
  Serious: Yes (Hospitalization, Other)
  Sender: FDA-Public Use
  Company Number: BR-JNJFOC-20120705498

PATIENT
  Sex: Female
  Weight: 98 kg

DRUGS (24)
  1. LYRICA [Suspect]
     Route: 048
  2. LYRICA [Suspect]
     Indication: PAIN
     Route: 048
  3. LYRICA [Suspect]
     Indication: INTERVERTEBRAL DISC PROTRUSION
     Route: 048
     Dates: start: 20110703
  4. LYRICA [Suspect]
     Route: 048
  5. TANDRILAX [Concomitant]
     Route: 048
     Dates: start: 20070101
  6. ATENOLOL [Concomitant]
     Indication: TACHYCARDIA
     Route: 065
     Dates: start: 20120601
  7. TRAMADOL HYDROCHLORIDE [Suspect]
     Indication: SPINAL PAIN
     Dosage: ORAL OR INJECTION (NOT INFORMED  WHETHER IT WAS INTRAMUSCULAR OR INTRAVENOUS)
     Route: 065
     Dates: start: 20070620
  8. LYRICA [Suspect]
     Route: 048
  9. TANDRILAX [Concomitant]
     Indication: PAIN
     Route: 048
     Dates: start: 20070101
  10. LYRICA [Suspect]
     Indication: SPINAL PAIN
     Route: 048
  11. GABAPENTIN [Concomitant]
     Indication: PRODUCT USED FOR UNKNOWN INDICATION
     Route: 065
  12. LYRICA [Suspect]
     Route: 048
     Dates: start: 20110703
  13. LYRICA [Suspect]
     Indication: BACK PAIN
     Route: 048
     Dates: start: 20110703
  14. MIDAZOLAM [Concomitant]
     Indication: PRODUCT USED FOR UNKNOWN INDICATION
     Route: 065
  15. NEBIVOLOL HCL [Concomitant]
     Indication: PRODUCT USED FOR UNKNOWN INDICATION
     Route: 065
     Dates: end: 20120601
  16. ZOLPIDEM [Concomitant]
     Indication: SLEEP DISORDER
     Route: 048
     Dates: end: 20110101
  17. LYRICA [Suspect]
     Route: 048
  18. TANDRILAX [Concomitant]
     Route: 048
  19. RYTHMOL [Concomitant]
     Indication: PRODUCT USED FOR UNKNOWN INDICATION
     Route: 065
     Dates: end: 20120601
  20. LYRICA [Suspect]
     Route: 048
     Dates: start: 20110703
  21. LYRICA [Suspect]
     Route: 048
  22. LYRICA [Suspect]
     Route: 048
  23. TANDRILAX [Concomitant]
     Indication: ANTIINFLAMMATORY THERAPY
     Route: 048
  24. ENALAPRIL MALEATE [Concomitant]
     Indication: HYPERTENSION
     Route: 048
     Dates: start: 20110101

REACTIONS (10)
  - WEIGHT INCREASED [None]
  - VISUAL IMPAIRMENT [None]
  - DRY MOUTH [None]
  - INSOMNIA [None]
  - CONSTIPATION [None]
  - DEPRESSION [None]
  - HYPERTENSION [None]
  - SPINAL DISORDER [None]
  - VISION BLURRED [None]
  - PAIN [None]
